FAERS Safety Report 5925309-1 (Version None)
Quarter: 2008Q4

REPORT INFORMATION
  Report Type: 
  Country: None (occurrence: None)
  Receive Date: 20081020
  Receipt Date: 20081020
  Transmission Date: 20090506
  Serious: Yes (Other)
  Sender: FDA-Public Use
  Company Number: None

PATIENT
  Age: 83 Year
  Sex: Female
  Weight: 42 kg

DRUGS (1)
  1. INFED [Suspect]
     Indication: IRON DEFICIENCY
     Dosage: 25MG DAILY IV
     Route: 042
     Dates: start: 20070928, end: 20070928

REACTIONS (2)
  - ANXIETY [None]
  - DYSPNOEA [None]
